FAERS Safety Report 8585462-0 (Version None)
Quarter: 2012Q3

REPORT INFORMATION
  Report Type: 
  Country: None (occurrence: None)
  Receive Date: 20120810
  Receipt Date: 20110721
  Transmission Date: 20120928
  Serious: No
  Sender: FDA-Public Use
  Company Number: US-GLAXOSMITHKLINE-A0937563A

PATIENT
  Age: 74 Year
  Sex: Male

DRUGS (9)
  1. REQUIP XL [Suspect]
     Indication: PARKINSON'S DISEASE
     Dosage: 6MG PER DAY
     Route: 048
     Dates: start: 20110714
  2. MOBIC [Concomitant]
  3. ZOCOR [Concomitant]
  4. SELEGILINE [Concomitant]
  5. CELEBREX [Concomitant]
  6. HYDROCODONE BITARTRATE [Concomitant]
  7. TOPROL-XL [Concomitant]
  8. AMBIEN [Concomitant]
  9. LIBRIUM [Concomitant]

REACTIONS (1)
  - CONSTIPATION [None]
